FAERS Safety Report 6921943-0 (Version None)
Quarter: 2010Q3

REPORT INFORMATION
  Report Type: 
  Country: None (occurrence: None)
  Receive Date: 20100812
  Receipt Date: 20100729
  Transmission Date: 20110219
  Serious: Yes (Other)
  Sender: FDA-Public Use
  Company Number: GB-MYLANLABS-2010S1013711

PATIENT
  Age: 26 Year
  Sex: Female

DRUGS (3)
  1. LAMOTRIGINE [Suspect]
     Indication: BIPOLAR DISORDER
     Route: 048
     Dates: start: 20100401, end: 20100714
  2. IMPLANON [Concomitant]
     Indication: CONTRACEPTION
  3. OMEPRAZOLE [Concomitant]
     Route: 048

REACTIONS (3)
  - CHEILITIS [None]
  - NAUSEA [None]
  - OROPHARYNGEAL BLISTERING [None]
